FAERS Safety Report 14207872 (Version 3)
Quarter: 2017Q4

REPORT INFORMATION
  Report Type: Report from Study
  Country: US (occurrence: US)
  Receive Date: 20171121
  Receipt Date: 20171208
  Transmission Date: 20180321
  Serious: Yes (Death, Hospitalization, Other)
  Sender: FDA-Public Use
  Company Number: US-GILEAD-2017-0305435

PATIENT
  Age: 8 Year
  Sex: Male
  Weight: 27 kg

DRUGS (9)
  1. REMODULIN [Suspect]
     Active Substance: TREPROSTINIL
     Dosage: 0.082 UG/KG, UNK
     Route: 065
     Dates: start: 20140627
  2. FUROSEMIDE. [Concomitant]
     Active Substance: FUROSEMIDE
  3. AMBRISENTAN [Suspect]
     Active Substance: AMBRISENTAN
     Indication: PULMONARY HYPERTENSION
     Dosage: 5 MG, QD
     Route: 048
     Dates: start: 20150810
  4. SILDENAFIL. [Concomitant]
     Active Substance: SILDENAFIL
     Dosage: 20 MG, TID
  5. TREPROSTINIL [Concomitant]
     Active Substance: TREPROSTINIL
  6. AMBRISENTAN [Suspect]
     Active Substance: AMBRISENTAN
     Indication: BRONCHOPULMONARY DYSPLASIA
  7. REMODULIN [Suspect]
     Active Substance: TREPROSTINIL
     Indication: PRODUCT USED FOR UNKNOWN INDICATION
     Dosage: 5 MG, UNK
     Route: 058
  8. VASOPRESSIN. [Concomitant]
     Active Substance: VASOPRESSIN
  9. AMBRISENTAN [Suspect]
     Active Substance: AMBRISENTAN
     Indication: PNEUMONECTOMY

REACTIONS (4)
  - Dyspnoea [Unknown]
  - Cardiopulmonary failure [Fatal]
  - Off label use [Recovered/Resolved]
  - Pulmonary function test decreased [Not Recovered/Not Resolved]

NARRATIVE: CASE EVENT DATE: 20150810
